FAERS Safety Report 6926017-0 (Version None)
Quarter: 2010Q3

REPORT INFORMATION
  Report Type: 
  Country: None (occurrence: None)
  Receive Date: 20100816
  Receipt Date: 20100803
  Transmission Date: 20110219
  Serious: Yes (Disabling, Other)
  Sender: FDA-Public Use
  Company Number: US-PFIZER INC-2007061763

PATIENT
  Sex: Female
  Weight: 82 kg

DRUGS (8)
  1. NEURONTIN [Suspect]
     Indication: DIABETIC NEUROPATHY
     Dosage: 100MG, 3X DAILY
     Route: 048
  2. LYRICA [Suspect]
     Indication: DIABETIC NEUROPATHY
     Dosage: 100 MG, 3X/DAY
     Dates: start: 20070101
  3. SYNTHROID [Concomitant]
  4. XANAX [Concomitant]
  5. TRAZODONE HCL [Concomitant]
  6. LITHIUM [Concomitant]
  7. MAGNESIUM OXIDE [Concomitant]
  8. SEROQUEL [Concomitant]

REACTIONS (10)
  - ACCIDENT [None]
  - ANKLE FRACTURE [None]
  - BLOOD CAFFEINE INCREASED [None]
  - DRUG INEFFECTIVE [None]
  - FATIGUE [None]
  - IMPAIRED DRIVING ABILITY [None]
  - MENTAL IMPAIRMENT [None]
  - NEUROPATHY PERIPHERAL [None]
  - SEDATION [None]
  - SOMNOLENCE [None]
